FAERS Safety Report 8156307 (Version 10)
Quarter: 2014Q2

REPORT INFORMATION
  Report Type: Spontaneous
  Country: US (occurrence: US)
  Receive Date: 20110926
  Receipt Date: 20140516
  Transmission Date: 20141212
  Serious: Yes (Disabling)
  Sender: FDA-Public Use
  Company Number: US-009507513-1109USA02456

PATIENT
  Sex: Male

DRUGS (1)
  1. PROPECIA [Suspect]
     Indication: ANDROGENETIC ALOPECIA
     Dosage: 1 MG, QD
     Route: 048
     Dates: start: 20020815, end: 201105

REACTIONS (19)
  - Anxiety [Not Recovered/Not Resolved]
  - Emotional distress [Unknown]
  - Sexual dysfunction [Recovering/Resolving]
  - Seborrhoeic dermatitis [Unknown]
  - Alopecia [Unknown]
  - Epididymal disorder [Unknown]
  - Epididymitis [Unknown]
  - Urethral stenosis [Unknown]
  - Pemphigus [Unknown]
  - Dandruff [Unknown]
  - Premature ejaculation [Unknown]
  - Urethritis [Unknown]
  - Musculoskeletal stiffness [Unknown]
  - Hydrocele [Unknown]
  - Erectile dysfunction [Unknown]
  - Depression [Not Recovered/Not Resolved]
  - Libido decreased [Unknown]
  - Testicular pain [Unknown]
  - Semen volume decreased [Unknown]
